FAERS Safety Report 10475072 (Version 1)
Quarter: 2014Q3

REPORT INFORMATION
  Report Type: Spontaneous
  Country: US (occurrence: None)
  Receive Date: 20140924
  Receipt Date: 20140924
  Transmission Date: 20150326
  Serious: Yes (Hospitalization)
  Sender: FDA-Public Use
  Company Number: None

PATIENT
  Age: 84 Year
  Sex: Male
  Weight: 63 kg

DRUGS (17)
  1. COREG [Concomitant]
     Active Substance: CARVEDILOL
  2. CILOSTAZOL. [Concomitant]
     Active Substance: CILOSTAZOL
  3. LEVOTHYROXINE [Concomitant]
     Active Substance: LEVOTHYROXINE
  4. REMERON [Concomitant]
     Active Substance: MIRTAZAPINE
  5. MIRALAX [Concomitant]
     Active Substance: POLYETHYLENE GLYCOL 3350
  6. AMIODARONE [Concomitant]
     Active Substance: AMIODARONE
  7. PRAVASTATIN [Concomitant]
     Active Substance: PRAVASTATIN\PRAVASTATIN SODIUM
  8. ASPIRIN ENTERIC COATED [Suspect]
     Active Substance: ASPIRIN
     Indication: CORONARY ARTERY DISEASE
     Route: 048
  9. MVI [Concomitant]
     Active Substance: VITAMINS
  10. OMEPRAZOLE. [Concomitant]
     Active Substance: OMEPRAZOLE
  11. SENNA [Concomitant]
     Active Substance: SENNA LEAF\SENNOSIDES\SENNOSIDES A AND B
  12. LANOX LISINOPRIL [Concomitant]
  13. FUROSEMIDE. [Concomitant]
     Active Substance: FUROSEMIDE
  14. ONDANSETRON [Concomitant]
     Active Substance: ONDANSETRON
  15. ALEVA [Concomitant]
  16. FINASTERIDE. [Concomitant]
     Active Substance: FINASTERIDE
  17. COUMADIN [Suspect]
     Active Substance: WARFARIN SODIUM
     Indication: ATRIAL FIBRILLATION
     Route: 048

REACTIONS (4)
  - Haemorrhagic anaemia [None]
  - Diverticulum intestinal [None]
  - Gastrointestinal arteriovenous malformation [None]
  - Haemorrhagic arteriovenous malformation [None]

NARRATIVE: CASE EVENT DATE: 20140521
